FAERS Safety Report 6251201-1 (Version None)
Quarter: 2009Q2

REPORT INFORMATION
  Report Type: 
  Country: None (occurrence: None)
  Receive Date: 20090630
  Receipt Date: 20090506
  Transmission Date: 20091009
  Serious: No
  Sender: FDA-Public Use
  Company Number: US-ABBOTT-09P-163-0571884-00

PATIENT
  Sex: Female

DRUGS (10)
  1. ZEMPLAR [Suspect]
     Indication: HYPERPARATHYROIDISM
     Dosage: 2 MCG DAILY
  2. BENICAR [Concomitant]
     Indication: DRUG USE FOR UNKNOWN INDICATION
  3. SIMVASTATIN [Concomitant]
     Indication: DRUG USE FOR UNKNOWN INDICATION
  4. CARBAMAZEPINE [Concomitant]
     Indication: DRUG USE FOR UNKNOWN INDICATION
  5. OXYBUTIN [Concomitant]
     Indication: DRUG USE FOR UNKNOWN INDICATION
  6. VITAMIN B-12 [Concomitant]
     Indication: DRUG USE FOR UNKNOWN INDICATION
  7. CRANBERRY [Concomitant]
     Indication: DRUG USE FOR UNKNOWN INDICATION
  8. STOOL SOFTENER [Concomitant]
     Indication: DRUG USE FOR UNKNOWN INDICATION
  9. PROTONIX [Concomitant]
     Indication: DRUG USE FOR UNKNOWN INDICATION
  10. VITAMIN D [Concomitant]
     Indication: VITAMIN SUPPLEMENTATION

REACTIONS (2)
  - DIZZINESS [None]
  - VISUAL IMPAIRMENT [None]
